FAERS Safety Report 13451368 (Version 1)
Quarter: 2017Q2

REPORT INFORMATION
  Report Type: Spontaneous
  Country: IN (occurrence: None)
  Receive Date: 20170417
  Receipt Date: 20170417
  Transmission Date: 20170830
  Serious: Yes (Other)
  Sender: FDA-Public Use
  Company Number: IN2017K2508LIT

PATIENT
  Age: 6 Year
  Sex: Male

DRUGS (9)
  1. NIFEDIPINE WORLD (NIFEDIPINE) [Suspect]
     Active Substance: NIFEDIPINE
     Indication: HYPERTENSION
  2. GLYCERYL TRINITRATE [Suspect]
     Active Substance: NITROGLYCERIN
     Indication: HYPERTENSION
     Dosage: UP TO 5 MCG/KG/MIN; INTRAVENOUS
     Route: 042
  3. ENALAPRIL WORLD (ENALAPRIL) UNKNOWN [Suspect]
     Active Substance: ENALAPRIL
     Indication: HYPERTENSION
     Route: 048
  4. METOPROLOL WORLD (METOPROLOL) UNKNOWN [Suspect]
     Active Substance: METOPROLOL
     Indication: HYPERTENSION
  5. CLONIDINE. [Suspect]
     Active Substance: CLONIDINE
     Indication: HYPERTENSION
  6. MINOXIDIL. [Suspect]
     Active Substance: MINOXIDIL
     Route: 048
  7. ALISKIREN WORLD (ALISKIREN) [Suspect]
     Active Substance: ALISKIREN
  8. PRAZOSINE [Suspect]
     Active Substance: PRAZOSIN HYDROCHLORIDE
     Indication: HYPERTENSION
  9. LABETALOL [Suspect]
     Active Substance: LABETALOL\LABETALOL HYDROCHLORIDE
     Indication: HYPERTENSION
     Dosage: UP TO 2 MG/KG/H; INTRAVENOUS
     Route: 042

REACTIONS (8)
  - Hypertension [None]
  - Malignant hypertension [None]
  - Hyperkalaemia [None]
  - Hallucination [None]
  - Abdominal pain [None]
  - Neutropenia [None]
  - Vomiting [None]
  - Vision blurred [None]
